FAERS Safety Report 14023927 (Version 5)
Quarter: 2019Q4

REPORT INFORMATION
  Report Type: Spontaneous
  Country: US (occurrence: US)
  Receive Date: 20170928
  Receipt Date: 20191002
  Transmission Date: 20200122
  Serious: Yes (Hospitalization, Other)
  Sender: FDA-Public Use
  Company Number: US-SA-2016SA227098

PATIENT
  Age: 60 Year
  Sex: Female

DRUGS (1)
  1. AUBAGIO [Suspect]
     Active Substance: TERIFLUNOMIDE
     Indication: MULTIPLE SCLEROSIS
     Dosage: 14 MG,QD
     Route: 048
     Dates: start: 20160915

REACTIONS (10)
  - Mobility decreased [Unknown]
  - Chest discomfort [Unknown]
  - Skin lesion [Unknown]
  - Upper respiratory tract infection [Recovered/Resolved]
  - Musculoskeletal stiffness [Unknown]
  - Fall [Unknown]
  - Myalgia [Unknown]
  - Multiple sclerosis relapse [Unknown]
  - Multiple sclerosis relapse [Not Recovered/Not Resolved]
  - Rash vesicular [Not Recovered/Not Resolved]

NARRATIVE: CASE EVENT DATE: 20161219
